FAERS Safety Report 16238149 (Version 4)
Quarter: 2019Q3

REPORT INFORMATION
  Report Type: Spontaneous
  Country: ES (occurrence: ES)
  Receive Date: 20190425
  Receipt Date: 20190710
  Transmission Date: 20191004
  Serious: Yes (Hospitalization, Other)
  Sender: FDA-Public Use
  Company Number: ES-009507513-1903ESP009841

PATIENT
  Age: 61 Year
  Sex: Male
  Weight: 75.3 kg

DRUGS (6)
  1. VANCOMYCIN [Concomitant]
     Active Substance: VANCOMYCIN
     Dosage: 125 MILLIGRAM , QD (EVERY 24 HOURS)
     Route: 048
  2. OMEPRAZOLE. [Concomitant]
     Active Substance: OMEPRAZOLE
     Dosage: UNK
     Dates: end: 201904
  3. VANCOMYCIN [Concomitant]
     Active Substance: VANCOMYCIN
     Indication: CLOSTRIDIUM DIFFICILE INFECTION
     Dosage: 125 MILLIGRAM, UNK
     Route: 048
     Dates: start: 20190319, end: 20190319
  4. VANCOMYCIN [Concomitant]
     Active Substance: VANCOMYCIN
     Dosage: 125 MILLIGRAM, Q12H (EVERY 12 HOURS)
     Route: 048
  5. RIFAXIMIN. [Concomitant]
     Active Substance: RIFAXIMIN
     Indication: CLOSTRIDIUM DIFFICILE INFECTION
     Dosage: 400 MILLIGRAM, UNK
     Route: 048
     Dates: start: 20190318, end: 20190320
  6. ZINPLAVA [Suspect]
     Active Substance: BEZLOTOXUMAB
     Indication: CLOSTRIDIUM DIFFICILE INFECTION
     Dosage: 753 MILLIGRAM IN 250 ML SALINE SOLUTION
     Route: 042
     Dates: start: 20190319, end: 20190319

REACTIONS (4)
  - Diarrhoea [Unknown]
  - Administration site extravasation [Recovered/Resolved]
  - Incorrect dose administered [Unknown]
  - Product administration error [Unknown]

NARRATIVE: CASE EVENT DATE: 20190319
